APPROVED DRUG PRODUCT: FLUOROURACIL
Active Ingredient: FLUOROURACIL
Strength: 1GM/20ML (50MG/ML)
Dosage Form/Route: INJECTABLE;INJECTION
Application: A040279 | Product #001 | TE Code: AP
Applicant: FRESENIUS KABI USA LLC
Approved: Sep 30, 1998 | RLD: No | RS: Yes | Type: RX